FAERS Safety Report 7864473-4 (Version None)
Quarter: 2011Q4

REPORT INFORMATION
  Report Type: 
  Country: None (occurrence: None)
  Receive Date: 20111028
  Receipt Date: 20111019
  Transmission Date: 20120403
  Serious: Yes (Hospitalization, Congenital Anomaly)
  Sender: FDA-Public Use
  Company Number: FR-UCBSA-043922

PATIENT
  Age: 10 Day
  Sex: Male
  Weight: 3.53 kg

DRUGS (1)
  1. XYZAL [Suspect]
     Indication: RHINITIS ALLERGIC
     Dosage: 5MG EVERY 2 DAYS
     Route: 064
     Dates: start: 20080808, end: 20090501

REACTIONS (2)
  - COARCTATION OF THE AORTA [None]
  - MATERNAL EXPOSURE DURING PREGNANCY [None]
